FAERS Safety Report 5915971-1 (Version None)
Quarter: 2008Q4

REPORT INFORMATION
  Report Type: 
  Country: None (occurrence: None)
  Receive Date: 20081013
  Receipt Date: 20080912
  Transmission Date: 20090506
  Serious: No
  Sender: FDA-Public Use
  Company Number: US-BAYER-200833660NA

PATIENT
  Age: 49 Year
  Sex: Male
  Weight: 93 kg

DRUGS (3)
  1. ULTRAVIST 370 [Suspect]
     Indication: ABDOMINAL PAIN LOWER
     Dosage: TOTAL DAILY DOSE: 120 ML  UNIT DOSE: 500 ML
     Route: 042
     Dates: start: 20080912, end: 20080912
  2. ALLOPURINOL [Concomitant]
  3. UNSPECIFIED ORAL CONTRAST [Concomitant]
     Route: 048
     Dates: start: 20080912, end: 20080912

REACTIONS (2)
  - PRURITUS [None]
  - URTICARIA [None]
